FAERS Safety Report 12203670 (Version 1)
Quarter: 2016Q1

REPORT INFORMATION
  Report Type: Spontaneous
  Country: US (occurrence: US)
  Receive Date: 20160323
  Receipt Date: 20160323
  Transmission Date: 20160526
  Serious: No
  Sender: FDA-Public Use
  Company Number: US-ELI_LILLY_AND_COMPANY-US201603002345

PATIENT
  Age: 61 Year
  Sex: Male

DRUGS (9)
  1. TRULICITY [Suspect]
     Active Substance: DULAGLUTIDE
     Indication: TYPE 2 DIABETES MELLITUS
     Dosage: 0.75 MG, WEEKLY (1/W)
     Route: 065
     Dates: start: 201512, end: 201602
  2. SIMVASTATIN. [Concomitant]
     Active Substance: SIMVASTATIN
     Dosage: UNK, UNKNOWN
     Route: 065
  3. CYCLOSET [Concomitant]
     Active Substance: BROMOCRIPTINE MESYLATE
     Dosage: UNK, UNKNOWN
     Route: 065
  4. ACARBOSE. [Concomitant]
     Active Substance: ACARBOSE
     Dosage: UNK, UNKNOWN
     Route: 065
  5. ACTOS [Concomitant]
     Active Substance: PIOGLITAZONE HYDROCHLORIDE
     Dosage: UNK, UNKNOWN
     Route: 065
  6. ACTOPLUS MET [Concomitant]
     Active Substance: METFORMIN HYDROCHLORIDE\PIOGLITAZONE HYDROCHLORIDE
     Dosage: UNK, UNKNOWN
     Route: 065
  7. INVOKANA [Concomitant]
     Active Substance: CANAGLIFLOZIN
     Dosage: UNK, UNKNOWN
     Route: 065
  8. JANUMET [Concomitant]
     Active Substance: METFORMIN HYDROCHLORIDE\SITAGLIPTIN PHOSPHATE
     Dosage: UNK, UNKNOWN
     Route: 065
  9. TRULICITY [Suspect]
     Active Substance: DULAGLUTIDE
     Dosage: 1.5 MG, WEEKLY (1/W)
     Route: 065
     Dates: start: 201602

REACTIONS (4)
  - Injection site swelling [Unknown]
  - Injection site erythema [Unknown]
  - Injection site pruritus [Unknown]
  - Injection site induration [Unknown]

NARRATIVE: CASE EVENT DATE: 201602
